FAERS Safety Report 5345326-2 (Version None)
Quarter: 2007Q2

REPORT INFORMATION
  Report Type: 
  Country: None (occurrence: None)
  Receive Date: 20070601
  Receipt Date: 20070516
  Transmission Date: 20071010
  Serious: Yes (Other)
  Sender: FDA-Public Use
  Company Number: DEP_00043_2007

PATIENT
  Age: 48 Year
  Sex: Female
  Weight: 106.1417 kg

DRUGS (4)
  1. METFORMIN HYDROCHLORIDE [Suspect]
     Indication: DIABETES MELLITUS
     Dosage: 250 MG QD ORAL
     Route: 048
     Dates: start: 20070416
  2. LISINOPRIL [Concomitant]
  3. NEXIUM [Concomitant]
  4. LORAZEPAM [Concomitant]

REACTIONS (2)
  - CHOKING [None]
  - WRONG TECHNIQUE IN DRUG USAGE PROCESS [None]
